FAERS Safety Report 4772597-3 (Version None)
Quarter: 2005Q3

REPORT INFORMATION
  Report Type: 
  Country: None (occurrence: None)
  Receive Date: 20050916
  Receipt Date: 20050916
  Transmission Date: 20060218
  Serious: Yes (Life-Threatening, Hospitalization, Other)
  Sender: FDA-Public Use
  Company Number: None

PATIENT
  Age: 42 Year
  Sex: Female
  Weight: 99.7913 kg

DRUGS (1)
  1. IMITREX [Suspect]
     Indication: MIGRAINE
     Dosage: ONCE
     Dates: start: 20050820

REACTIONS (6)
  - AGGRESSION [None]
  - BACK INJURY [None]
  - FALL [None]
  - FEELING HOT [None]
  - GRAND MAL CONVULSION [None]
  - VOMITING [None]
